FAERS Safety Report 5851965-2 (Version None)
Quarter: 2008Q3

REPORT INFORMATION
  Report Type: 
  Country: None (occurrence: None)
  Receive Date: 20080820
  Receipt Date: 20080808
  Transmission Date: 20090109
  Serious: Yes (Other)
  Sender: FDA-Public Use
  Company Number: US-PFIZER INC-2008028519

PATIENT
  Sex: Female
  Weight: 77 kg

DRUGS (35)
  1. LYRICA [Suspect]
     Indication: PAIN
     Route: 048
     Dates: start: 20080310, end: 20080323
  2. LYRICA [Suspect]
     Indication: NEURALGIA
  3. LYRICA [Suspect]
     Indication: MYOFASCIAL PAIN SYNDROME
  4. AMBIEN [Concomitant]
  5. AMBIEN [Concomitant]
  6. XANAX [Concomitant]
  7. XANAX [Concomitant]
  8. PREMARIN [Concomitant]
  9. PREMARIN [Concomitant]
  10. DICLOFENAC [Concomitant]
  11. DICLOFENAC [Concomitant]
  12. ROBAXIN [Concomitant]
  13. ROBAXIN [Concomitant]
  14. OXYCONTIN [Concomitant]
  15. OXYCONTIN [Concomitant]
  16. OXYCODONE HYDROCHLORIDE W/PARACETAMOL [Concomitant]
  17. OXYCODONE HYDROCHLORIDE W/PARACETAMOL [Concomitant]
  18. VITAMIN B-12 [Concomitant]
  19. VITAMIN B-12 [Concomitant]
  20. FOLIC ACID [Concomitant]
  21. FOLIC ACID [Concomitant]
  22. PREDNISONE TAB [Concomitant]
  23. PREDNISONE TAB [Concomitant]
  24. METHOTREXATE SODIUM [Concomitant]
  25. METHOTREXATE SODIUM [Concomitant]
  26. CELLCEPT [Concomitant]
  27. CELLCEPT [Concomitant]
  28. PROZAC [Concomitant]
  29. PROZAC [Concomitant]
  30. RITALIN [Concomitant]
  31. RITALIN [Concomitant]
  32. ARALEN [Concomitant]
  33. ARALEN [Concomitant]
  34. ABILIFY [Concomitant]
  35. ABILIFY [Concomitant]

REACTIONS (2)
  - ANGER [None]
  - EMOTIONAL DISTRESS [None]
